FAERS Safety Report 4637191-3 (Version None)
Quarter: 2005Q2

REPORT INFORMATION
  Report Type: 
  Country: None (occurrence: None)
  Receive Date: 20050416
  Receipt Date: 20050210
  Transmission Date: 20051028
  Serious: Yes (Other)
  Sender: FDA-Public Use
  Company Number: PHNU2005DE01035

PATIENT
  Age: 56 Year
  Sex: Male
  Weight: 78 kg

DRUGS (3)
  1. ELIDEL [Suspect]
     Indication: NEURODERMATITIS
     Dosage: UNK, UNK
     Route: 061
     Dates: start: 20050201, end: 20050202
  2. BELOC MITE [Suspect]
     Indication: LABILE HYPERTENSION
     Dosage: 1 DF, QD
     Route: 048
  3. HALDOL [Suspect]
     Indication: DYSTHYMIC DISORDER
     Dosage: 10 MG, BID
     Route: 048

REACTIONS (6)
  - DRUG HYPERSENSITIVITY [None]
  - INFLAMMATION [None]
  - NEURODERMATITIS [None]
  - OEDEMA [None]
  - OEDEMA PERIPHERAL [None]
  - VASCULITIS [None]
